FAERS Safety Report 5065976-0 (Version None)
Quarter: 2006Q3

REPORT INFORMATION
  Report Type: 
  Country: None (occurrence: None)
  Receive Date: 20060728
  Receipt Date: 20060728
  Transmission Date: 20061208
  Serious: Yes (Other)
  Sender: FDA-Public Use
  Company Number: None

PATIENT
  Sex: Female
  Weight: 58.9676 kg

DRUGS (1)
  1. THYROID TAB [Suspect]
     Indication: HYPOTHYROIDISM
     Dosage: ONE CAPSULE   EVERY THIRD DAY   PO
     Route: 048
     Dates: start: 19980501, end: 20060501

REACTIONS (2)
  - HYPERTHYROIDISM [None]
  - SELF-MEDICATION [None]
